FAERS Safety Report 19313966 (Version 1)
Quarter: 2021Q2

REPORT INFORMATION
  Report Type: Report from Study
  Country: US (occurrence: US)
  Receive Date: 20210527
  Receipt Date: 20210527
  Transmission Date: 20210717
  Serious: Yes (Hospitalization, Other)
  Sender: FDA-Public Use
  Company Number: US-MYLANLABS-2021M1030604

PATIENT
  Sex: Female

DRUGS (4)
  1. MELPHALAN. [Concomitant]
     Active Substance: MELPHALAN
     Indication: RETINOBLASTOMA
     Dosage: UNK, CYCLE1 CYCLE IN THE LEFT EYE AT CURRENT FACILITY
  2. CARBOPLATIN. [Suspect]
     Active Substance: CARBOPLATIN
     Indication: RETINOBLASTOMA
     Dosage: UNK UNK, CYCLE OAC REGIMEN: 1 CYCLE IN THE LEFT EYE AT CURRENT FACILITY
     Route: 013
  3. MELPHALAN. [Suspect]
     Active Substance: MELPHALAN
     Indication: RETINOBLASTOMA
     Dosage: UNK, CYCLE, OAC REGIMEN: 1 CYCLE IN THE LEFT EYE AT CURRENT FACILITY
     Route: 013
  4. TOPOTECAN [Suspect]
     Active Substance: TOPOTECAN HYDROCHLORIDE
     Indication: RETINOBLASTOMA
     Dosage: UNK, CYCLE, OAC REGIMEN: 1 CYCLE IN THE LEFT EYE AT CURRENT FACILITY
     Route: 013

REACTIONS (3)
  - Haematotoxicity [Unknown]
  - Peripheral artery thrombosis [Recovered/Resolved]
  - Off label use [Unknown]
